FAERS Safety Report 8396802-X (Version None)
Quarter: 2012Q2

REPORT INFORMATION
  Report Type: 
  Country: None (occurrence: None)
  Receive Date: 20120530
  Receipt Date: 20120523
  Transmission Date: 20120825
  Serious: Yes (Other)
  Sender: FDA-Public Use
  Company Number: US-PFIZER INC-2012124986

PATIENT
  Sex: Female

DRUGS (1)
  1. CLINDAMYCIN PHOSPHATE [Suspect]
     Dosage: UNK

REACTIONS (9)
  - ANAL FISSURE [None]
  - SWEAT GLAND DISORDER [None]
  - OPEN WOUND [None]
  - GENERAL PHYSICAL CONDITION ABNORMAL [None]
  - SKIN TIGHTNESS [None]
  - PAIN [None]
  - ACTIVITIES OF DAILY LIVING IMPAIRED [None]
  - EYELID DISORDER [None]
  - BONE DISORDER [None]
